FAERS Safety Report 9037564 (Version 1)
Quarter: 2013Q1

REPORT INFORMATION
  Report Type: Spontaneous
  Country: JP (occurrence: JP)
  Receive Date: 20130129
  Receipt Date: 20130129
  Transmission Date: 20140127
  Serious: Yes (Other)
  Sender: FDA-Public Use
  Company Number: JP-009507513-1301JPN012348

PATIENT
  Age: 70 Year
  Sex: Male

DRUGS (3)
  1. RINDERON [Suspect]
     Indication: MALAISE
     Dosage: 1.5 MG, QD
  2. RINDERON [Suspect]
     Dosage: 0.5 MG/D
  3. GLIMEPRID [Concomitant]
     Indication: DIABETES MELLITUS
     Route: 048

REACTIONS (3)
  - Diabetes mellitus [Recovering/Resolving]
  - Insomnia [Recovering/Resolving]
  - Malaise [Recovering/Resolving]
